FAERS Safety Report 22010917 (Version 3)
Quarter: 2023Q2

REPORT INFORMATION
  Report Type: Spontaneous
  Country: US (occurrence: US)
  Receive Date: 20230220
  Receipt Date: 20230606
  Transmission Date: 20230722
  Serious: Yes (Other)
  Sender: FDA-Public Use
  Company Number: US-SA-SAC20230217000381

PATIENT
  Age: 62 Year
  Sex: Female

DRUGS (1)
  1. AUBAGIO [Suspect]
     Active Substance: TERIFLUNOMIDE
     Indication: Multiple sclerosis
     Dosage: 14 MG, QD
     Route: 048
     Dates: start: 20230109, end: 20230601

REACTIONS (8)
  - Multiple sclerosis relapse [Unknown]
  - Cardiovascular insufficiency [Unknown]
  - Injection site indentation [Unknown]
  - Peripheral swelling [Unknown]
  - Dyspnoea [Unknown]
  - Pain in extremity [Unknown]
  - Hypoaesthesia [Unknown]
  - Alopecia [Unknown]

NARRATIVE: CASE EVENT DATE: 20230501
